FAERS Safety Report 22625004 (Version 1)
Quarter: 2023Q2

REPORT INFORMATION
  Report Type: Spontaneous
  Country: KR (occurrence: KR)
  Receive Date: 20230621
  Receipt Date: 20230621
  Transmission Date: 20230721
  Serious: Yes (Other)
  Sender: FDA-Public Use
  Company Number: KR-PFIZER INC-PV202300106839

PATIENT
  Sex: Male

DRUGS (1)
  1. PAXLOVID [Suspect]
     Active Substance: NIRMATRELVIR\RITONAVIR
     Indication: COVID-19 treatment
     Dosage: [PF-07321332 300 MG]/[RITONAVIR 100 MG]; 2X/DAY(EVERY 12 HOURS)
     Route: 048
     Dates: start: 20230612

REACTIONS (6)
  - Pain [Unknown]
  - Discomfort [Unknown]
  - Nasopharyngitis [Unknown]
  - Dyspnoea [Unknown]
  - Product dose omission issue [Recovered/Resolved]
  - Dysgeusia [Not Recovered/Not Resolved]

NARRATIVE: CASE EVENT DATE: 20230601
